FAERS Safety Report 16408532 (Version 1)
Quarter: 2019Q2

REPORT INFORMATION
  Report Type: Spontaneous
  Country: US (occurrence: US)
  Receive Date: 20190610
  Receipt Date: 20190610
  Transmission Date: 20190711
  Serious: No
  Sender: FDA-Public Use
  Company Number: US-TEVA-2019-US-1051675

PATIENT
  Sex: Female

DRUGS (2)
  1. MORPHINE SULFER CAPSULES [Suspect]
     Active Substance: MORPHINE SULFATE
     Indication: POST-TRAUMATIC PAIN
  2. MORPHINE SULFER CAPSULES [Suspect]
     Active Substance: MORPHINE SULFATE
     Indication: THORACIC OUTLET SYNDROME
     Dates: start: 2004

REACTIONS (2)
  - Blood pressure increased [Unknown]
  - Product dose omission [Unknown]
